FAERS Safety Report 16854912 (Version 1)
Quarter: 2019Q3

REPORT INFORMATION
  Report Type: Spontaneous
  Country: US (occurrence: US)
  Receive Date: 20190926
  Receipt Date: 20190926
  Transmission Date: 20191005
  Serious: Yes (Hospitalization, Other)
  Sender: FDA-Public Use
  Company Number: US-GILEAD-2019-0430257

PATIENT
  Age: 61 Year
  Sex: Male

DRUGS (6)
  1. DOC-Q-LAX [Concomitant]
     Dosage: UNKNOWN
  2. EPCLUSA [Suspect]
     Active Substance: SOFOSBUVIR\VELPATASVIR
     Indication: CHRONIC HEPATITIS C
     Dosage: 1 DOSAGE FORM, QD
     Route: 048
     Dates: start: 201907
  3. SPIRONOLACTONE. [Concomitant]
     Active Substance: SPIRONOLACTONE
     Dosage: UNKNOWN
  4. POTASSIMIN [Concomitant]
     Dosage: UNKNOWN
  5. FLOMAX [Concomitant]
     Active Substance: TAMSULOSIN HYDROCHLORIDE
     Dosage: UNKNOWN
  6. LASIX [Concomitant]
     Active Substance: FUROSEMIDE
     Dosage: UNKNOWN

REACTIONS (4)
  - Hepatic failure [Unknown]
  - Fluid retention [Recovered/Resolved]
  - Mineral deficiency [Unknown]
  - Bacteraemia [Recovered/Resolved]

NARRATIVE: CASE EVENT DATE: 20190903
